FAERS Safety Report 20794727 (Version 1)
Quarter: 2022Q2

REPORT INFORMATION
  Report Type: Spontaneous
  Country: US (occurrence: US)
  Receive Date: 20220506
  Receipt Date: 20220506
  Transmission Date: 20220721
  Serious: Yes (Death, Hospitalization, Other)
  Sender: FDA-Public Use
  Company Number: US-MLMSERVICE-20220421-3511777-1

PATIENT
  Age: 17 Year
  Sex: Female

DRUGS (6)
  1. DOXORUBICIN HYDROCHLORIDE [Suspect]
     Active Substance: DOXORUBICIN HYDROCHLORIDE
     Indication: Hodgkin^s disease
     Dosage: UNK , CYCLIC
     Dates: start: 2019
  2. BLEOMYCIN SULFATE [Suspect]
     Active Substance: BLEOMYCIN SULFATE
     Indication: Hodgkin^s disease
     Dosage: UNK , CYCLIC
     Dates: start: 2019
  3. VINCRISTINE SULFATE [Suspect]
     Active Substance: VINCRISTINE SULFATE
     Indication: Hodgkin^s disease
     Dosage: UNK , CYCLIC
     Dates: start: 2019
  4. ETOPOSIDE PHOSPHATE [Suspect]
     Active Substance: ETOPOSIDE PHOSPHATE
     Indication: Hodgkin^s disease
     Dosage: UNK , CYCLIC
     Dates: start: 2019
  5. PREDNISONE [Suspect]
     Active Substance: PREDNISONE
     Indication: Hodgkin^s disease
     Dosage: UNK , CYCLIC
     Dates: start: 2019
  6. CYCLOPHOSPHAMIDE [Suspect]
     Active Substance: CYCLOPHOSPHAMIDE
     Indication: Hodgkin^s disease
     Dosage: UNK , CYCLIC
     Dates: start: 2019

REACTIONS (11)
  - Respiratory failure [Fatal]
  - Measles [Fatal]
  - Febrile neutropenia [Unknown]
  - Actinomycosis [Unknown]
  - Abdominal pain [Unknown]
  - Varicella zoster virus infection [Unknown]
  - Pneumonia fungal [Not Recovered/Not Resolved]
  - Urticaria [Recovering/Resolving]
  - Papule [Unknown]
  - Pharyngeal erythema [Unknown]
  - Neoplasm progression [Unknown]

NARRATIVE: CASE EVENT DATE: 20190101
